FAERS Safety Report 7246532-2 (Version None)
Quarter: 2011Q1

REPORT INFORMATION
  Report Type: 
  Country: None (occurrence: None)
  Receive Date: 20110127
  Receipt Date: 20110119
  Transmission Date: 20110831
  Serious: Yes (Hospitalization, Disabling)
  Sender: FDA-Public Use
  Company Number: US-BIOGENIDEC-2010BI014126

PATIENT
  Age: 46 Year
  Sex: Male

DRUGS (10)
  1. NICOTINE [Concomitant]
     Indication: SMOKING CESSATION THERAPY
     Route: 062
  2. PERCOCET [Concomitant]
     Route: 048
  3. TYSABRI [Suspect]
     Indication: MULTIPLE SCLEROSIS
     Route: 042
     Dates: start: 20080602
  4. VYTORIN [Concomitant]
     Indication: BLOOD PRESSURE
     Route: 048
  5. ZYRTEC [Concomitant]
     Indication: MULTIPLE ALLERGIES
     Route: 048
  6. ASTELIN [Concomitant]
  7. COMBIVENT [Concomitant]
     Route: 055
  8. IBUPROFEN [Concomitant]
  9. DETROL LA [Concomitant]
     Route: 048
  10. BACLOFEN [Concomitant]
     Indication: MUSCLE SPASTICITY
     Route: 048

REACTIONS (1)
  - CARDIOMYOPATHY [None]
